FAERS Safety Report 4427806-7 (Version None)
Quarter: 2004Q3

REPORT INFORMATION
  Report Type: 
  Country: None (occurrence: None)
  Receive Date: 20040812
  Receipt Date: 20040730
  Transmission Date: 20050211
  Serious: Yes (Hospitalization, Other)
  Sender: FDA-Public Use
  Company Number: 2004052383

PATIENT
  Age: 47 Year
  Sex: Male
  Weight: 74.3899 kg

DRUGS (3)
  1. NEURONTIN [Suspect]
     Indication: NEURALGIA
     Dosage: 1200 MG (400 MG, 3 IN 1 D), ORAL
     Route: 048
     Dates: start: 20010101
  2. CLONAZEPAM (CLOAZEPAM) [Concomitant]
  3. VENLAFAXINE HYDROCHLORIDE (VENLAFAXINE [Concomitant]

REACTIONS (10)
  - ABDOMINAL PAIN UPPER [None]
  - CONSTIPATION [None]
  - DIARRHOEA [None]
  - GASTROINTESTINAL EROSION [None]
  - INTESTINAL OBSTRUCTION [None]
  - MASTICATION DISORDER [None]
  - NAUSEA [None]
  - ORAL DISCOMFORT [None]
  - ORAL FUNGAL INFECTION [None]
  - VITAMIN B12 DECREASED [None]
